FAERS Safety Report 7866084-3 (Version None)
Quarter: 2011Q4

REPORT INFORMATION
  Report Type: 
  Country: None (occurrence: None)
  Receive Date: 20111028
  Receipt Date: 20110420
  Transmission Date: 20120403
  Serious: No
  Sender: FDA-Public Use
  Company Number: US-GLAXOSMITHKLINE-A0923774A

PATIENT
  Sex: Male

DRUGS (6)
  1. ALDACTONE [Concomitant]
  2. DIGOXIN [Concomitant]
  3. INSULIN [Concomitant]
  4. ADVAIR DISKUS 100/50 [Suspect]
     Indication: BRONCHITIS
     Dosage: 1PUFF TWICE PER DAY
     Route: 055
  5. LISINOPRIL [Concomitant]
  6. COREG [Concomitant]

REACTIONS (1)
  - DRUG INEFFECTIVE [None]
